FAERS Safety Report 6370290-7 (Version None)
Quarter: 2009Q3

REPORT INFORMATION
  Report Type: 
  Country: None (occurrence: None)
  Receive Date: 20090921
  Receipt Date: 20090921
  Transmission Date: 20100115
  Serious: Yes (Disabling)
  Sender: FDA-Public Use
  Company Number: None

PATIENT

DRUGS (1)
  1. SIMVASTATIN [Suspect]
     Dosage: 20 MG 1 TIME BEDTIME ORAL
     Route: 048

REACTIONS (3)
  - MYALGIA [None]
  - NO THERAPEUTIC RESPONSE [None]
  - RESTLESS LEGS SYNDROME [None]
